FAERS Safety Report 6613997-6 (Version None)
Quarter: 2010Q1

REPORT INFORMATION
  Report Type: 
  Country: None (occurrence: None)
  Receive Date: 20100225
  Receipt Date: 20090106
  Transmission Date: 20100710
  Serious: Yes (Other)
  Sender: FDA-Public Use
  Company Number: 552240

PATIENT
  Age: 14 Year
  Sex: Male
  Weight: 72.6 kg

DRUGS (1)
  1. ACCUTANE [Suspect]
     Indication: ACNE
     Dosage: 40 MG 2 PER DAY
     Dates: start: 19991007, end: 20000301

REACTIONS (6)
  - CHEILITIS [None]
  - COLITIS [None]
  - CROHN'S DISEASE [None]
  - DRY SKIN [None]
  - INFLAMMATORY BOWEL DISEASE [None]
  - MYALGIA [None]
